FAERS Safety Report 25865710 (Version 1)
Quarter: 2025Q3

REPORT INFORMATION
  Report Type: Spontaneous
  Country: US (occurrence: US)
  Receive Date: 20250930
  Receipt Date: 20250930
  Transmission Date: 20251021
  Serious: No
  Sender: HERON
  Company Number: US-HERON THERAPEUTICS, INC-HRTX-2025-001112

PATIENT
  Sex: Female

DRUGS (2)
  1. ZYNRELEF [Suspect]
     Active Substance: BUPIVACAINE\MELOXICAM
     Indication: Postoperative analgesia
     Route: 065
     Dates: start: 20250908, end: 20250908
  2. ZYNRELEF [Suspect]
     Active Substance: BUPIVACAINE\MELOXICAM
     Indication: Knee arthroplasty
     Route: 065
     Dates: start: 20241104, end: 20241104

REACTIONS (2)
  - Pain [Unknown]
  - Drug effect less than expected [Unknown]
